FAERS Safety Report 8788278 (Version 1)
Quarter: 2012Q4

REPORT INFORMATION
  Report Type: 
  Country: US (occurrence: US)
  Receive Date: 20120914
  Receipt Date: 20120914
  Transmission Date: 20130627
  Serious: Yes (Other)
  Sender: FDA-Public Use
  Company Number: US-VERTEX PHARMACEUTICAL INC.-AE-2012-011799

PATIENT
  Age: 57 Year
  Sex: Male
  Weight: 110 kg

DRUGS (6)
  1. VX-950 (TELAPREVIR) [Suspect]
     Indication: HEPATITIS C
     Dosage: 750 mg, tid
     Route: 048
     Dates: start: 20120416, end: 20120807
  2. PEG-INTRON [Suspect]
     Indication: HEPATITIS C
     Route: 058
     Dates: start: 20120416, end: 20120807
  3. REBETOL [Suspect]
     Indication: HEPATITIS C
     Dosage: 600 mg, bid
     Dates: start: 20120416
  4. REBETOL [Suspect]
     Dosage: 200 UNK, UNK
     Dates: start: 20120806
  5. CRESTOR [Concomitant]
  6. ALLOPURINOL [Concomitant]
     Indication: GOUT

REACTIONS (4)
  - Anaemia [Not Recovered/Not Resolved]
  - Leukopenia [Unknown]
  - Dizziness [Unknown]
  - Asthenia [Unknown]
